FAERS Safety Report 6152384-4 (Version None)
Quarter: 2009Q2

REPORT INFORMATION
  Report Type: 
  Country: None (occurrence: None)
  Receive Date: 20090409
  Receipt Date: 20090327
  Transmission Date: 20091009
  Serious: Yes (Hospitalization)
  Sender: FDA-Public Use
  Company Number: 2009000641

PATIENT
  Age: 68 Year
  Sex: Male
  Weight: 97.5 kg

DRUGS (11)
  1. ERLOTINIB (ERLOTINIB) (TABLET) (ERLOTINIB) [Suspect]
     Indication: NON-SMALL CELL LUNG CANCER
     Dosage: (150 MG, QD), ORAL
     Route: 048
     Dates: start: 20080621
  2. DIGOXIN [Concomitant]
  3. ANZEMET [Concomitant]
  4. LOPERAMIDE [Concomitant]
  5. FUROSEMIDE [Concomitant]
  6. AMIODARONE (AMIODARONE) [Concomitant]
  7. POTASSIUM (POTASSIUM) [Concomitant]
  8. AMBIEN [Concomitant]
  9. COUMADIN [Concomitant]
  10. XANAX [Concomitant]
  11. PRILOSEC [Concomitant]

REACTIONS (8)
  - ATELECTASIS [None]
  - ATRIAL FIBRILLATION [None]
  - CYTOLOGY ABNORMAL [None]
  - HAEMOGLOBIN DECREASED [None]
  - HEART RATE IRREGULAR [None]
  - PERICARDIAL EFFUSION [None]
  - PLEURAL EFFUSION [None]
  - RESPIRATORY DISTRESS [None]
